FAERS Safety Report 5788223-0 (Version None)
Quarter: 2008Q2

REPORT INFORMATION
  Report Type: 
  Country: None (occurrence: None)
  Receive Date: 20080623
  Receipt Date: 20080616
  Transmission Date: 20081010
  Serious: Yes (Death, Hospitalization, Other)
  Sender: FDA-Public Use
  Company Number: 19539

PATIENT
  Age: 70 Year
  Sex: Male

DRUGS (6)
  1. PACLITAXEL [Suspect]
     Indication: OESOPHAGEAL CARCINOMA
  2. PACLITAXEL [Suspect]
     Indication: OESOPHAGEAL CARCINOMA
  3. FLUOROURACIL [Suspect]
     Indication: OESOPHAGEAL CARCINOMA
  4. FLUOROURACIL [Suspect]
     Indication: OESOPHAGEAL DISORDER
  5. CISPLATIN [Suspect]
     Indication: OESOPHAGEAL CARCINOMA
  6. RADIATION [Suspect]
     Indication: OESOPHAGEAL DISORDER

REACTIONS (8)
  - ANAEMIA [None]
  - CLOSTRIDIUM DIFFICILE COLITIS [None]
  - METASTASES TO ADRENALS [None]
  - METASTASES TO LIVER [None]
  - METASTASES TO LUNG [None]
  - PLEURAL EFFUSION [None]
  - PNEUMONITIS [None]
  - RESPIRATORY DISTRESS [None]
